FAERS Safety Report 14967459 (Version 11)
Quarter: 2020Q1

REPORT INFORMATION
  Report Type: Spontaneous
  Country: GR (occurrence: GR)
  Receive Date: 20180604
  Receipt Date: 20200225
  Transmission Date: 20200409
  Serious: Yes (Hospitalization)
  Sender: FDA-Public Use
  Company Number: GR-ROCHE-2132593

PATIENT
  Age: 44 Year
  Sex: Female
  Weight: 72 kg

DRUGS (9)
  1. BRIVIR [Interacting]
     Active Substance: BRIVUDINE
     Indication: HERPES ZOSTER
     Dosage: ON DAY 8-14 OF THE SIXTH CYCLE DOSE
     Route: 065
     Dates: start: 20171203, end: 20171210
  2. METRONIDAZOLE. [Concomitant]
     Active Substance: METRONIDAZOLE
  3. FLUCONAZOLE. [Concomitant]
     Active Substance: FLUCONAZOLE
  4. PREDNISONE. [Concomitant]
     Active Substance: PREDNISONE
  5. CAPECITABINE. [Interacting]
     Active Substance: CAPECITABINE
     Indication: K-RAS GENE MUTATION
     Route: 065
     Dates: start: 20171206, end: 20171210
  6. CAPECITABINE. [Suspect]
     Active Substance: CAPECITABINE
     Indication: COLON CANCER METASTATIC
     Route: 048
     Dates: end: 20171128
  7. TEICOPLANIN [Concomitant]
     Active Substance: TEICOPLANIN
  8. FILGRASTIM [Concomitant]
     Active Substance: FILGRASTIM
  9. BRIVIR [Interacting]
     Active Substance: BRIVUDINE
     Indication: COLORECTAL CANCER
     Route: 065

REACTIONS (12)
  - Neutropenia [Recovered/Resolved]
  - Dysphagia [Recovered/Resolved]
  - Rash maculo-papular [Recovered/Resolved]
  - Drug interaction [Unknown]
  - Stomatitis [Recovered/Resolved]
  - Diarrhoea [Recovered/Resolved]
  - Thrombocytopenia [Recovered/Resolved]
  - Anaemia [Recovered/Resolved]
  - Clostridium difficile infection [Unknown]
  - Medication error [Unknown]
  - Alopecia [Recovered/Resolved]
  - Oesophagitis [Recovered/Resolved]

NARRATIVE: CASE EVENT DATE: 20180104
